FAERS Safety Report 7497530-5 (Version None)
Quarter: 2011Q2

REPORT INFORMATION
  Report Type: 
  Country: None (occurrence: None)
  Receive Date: 20110523
  Receipt Date: 20110510
  Transmission Date: 20111010
  Serious: Yes (Other)
  Sender: FDA-Public Use
  Company Number: PHHY2011FR28540

PATIENT
  Sex: Male
  Weight: 74 kg

DRUGS (1)
  1. EVEROLIMUS [Suspect]
     Indication: METASTATIC RENAL CELL CARCINOMA
     Dosage: 10 MG/DAY
     Dates: start: 20110222

REACTIONS (8)
  - SKIN LESION [None]
  - HEADACHE [None]
  - FOLLICULITIS [None]
  - APHTHOUS STOMATITIS [None]
  - THROMBOCYTOPENIA [None]
  - BLOOD TRIGLYCERIDES INCREASED [None]
  - BLOOD CHOLESTEROL INCREASED [None]
  - STAPHYLOCOCCAL INFECTION [None]
